FAERS Safety Report 5967067-0 (Version None)
Quarter: 2008Q4

REPORT INFORMATION
  Report Type: 
  Country: None (occurrence: None)
  Receive Date: 20081125
  Receipt Date: 20081119
  Transmission Date: 20090506
  Serious: Yes (Hospitalization, Other)
  Sender: FDA-Public Use
  Company Number: US-AMGEN-QUU313938

PATIENT
  Sex: Male
  Weight: 104 kg

DRUGS (9)
  1. EPOGEN [Suspect]
     Indication: RENAL FAILURE CHRONIC
     Route: 042
     Dates: start: 20070108
  2. PHOSLO [Concomitant]
     Dates: start: 20081008
  3. PRILOSEC [Concomitant]
     Dates: start: 20081006
  4. NORVASC [Concomitant]
     Route: 048
     Dates: start: 20081023
  5. NEPHROCAPS [Concomitant]
     Dates: start: 20080122
  6. LIPITOR [Concomitant]
     Dates: start: 20071023
  7. LASIX [Concomitant]
     Route: 048
     Dates: start: 20071102
  8. COREG [Concomitant]
     Dates: start: 20071101
  9. ASPIRIN [Concomitant]
     Dates: start: 20071101

REACTIONS (4)
  - BONE MARROW FAILURE [None]
  - KIDNEY TRANSPLANT REJECTION [None]
  - RENAL FAILURE CHRONIC [None]
  - THERAPEUTIC RESPONSE DECREASED [None]
